FAERS Safety Report 4610231-3 (Version None)
Quarter: 2005Q1

REPORT INFORMATION
  Report Type: 
  Country: None (occurrence: None)
  Receive Date: 20050314
  Receipt Date: 20050301
  Transmission Date: 20050727
  Serious: Yes (Disabling)
  Sender: FDA-Public Use
  Company Number: PHHO2005AR03718

PATIENT
  Age: 79 Year
  Sex: Female

DRUGS (3)
  1. NICOTINELL NICOTINE (NCH) (NICOTINE) TRANS-THERAPEUTIC-SYSTEM [Suspect]
  2. SINTROM 4 (ACENOCOUMAROL) [Suspect]
  3. VENORUTON (NCH) (TROXERUTIN) [Suspect]
     Dosage: 1 G, QD,
     Dates: start: 20000101

REACTIONS (3)
  - FALL [None]
  - THROMBOSIS [None]
  - WRIST FRACTURE [None]
